FAERS Safety Report 9038907 (Version 2)
Quarter: 2013Q2

REPORT INFORMATION
  Report Type: Spontaneous
  Country: TR (occurrence: TR)
  Receive Date: 20130129
  Receipt Date: 20130429
  Transmission Date: 20140414
  Serious: Yes (Other)
  Sender: FDA-Public Use
  Company Number: TR-AMGEN-TURSP2012025784

PATIENT
  Age: 47 Year
  Sex: Female

DRUGS (2)
  1. ENBREL [Suspect]
     Indication: ANKYLOSING SPONDYLITIS
     Dosage: 50 MG, WEEKLY
     Route: 058
     Dates: start: 20110506, end: 201301
  2. ENBREL [Suspect]
     Indication: RHEUMATOID ARTHRITIS
     Dosage: 50 MG, QWK
     Route: 058

REACTIONS (6)
  - Bone deformity [Recovered/Resolved]
  - Fatigue [Unknown]
  - Arthralgia [Not Recovered/Not Resolved]
  - Bone erosion [Not Recovered/Not Resolved]
  - Influenza [Not Recovered/Not Resolved]
  - Injection site pain [Recovered/Resolved]
